FAERS Safety Report 16735036 (Version 3)
Quarter: 2019Q4

REPORT INFORMATION
  Report Type: Spontaneous
  Country: GB (occurrence: GB)
  Receive Date: 20190823
  Receipt Date: 20191020
  Transmission Date: 20200122
  Serious: Yes (Other)
  Sender: FDA-Public Use
  Company Number: GB-NOVOPROD-680063

PATIENT
  Age: 32 Year
  Sex: Female
  Weight: 74 kg

DRUGS (1)
  1. NOVORAPID [Suspect]
     Active Substance: INSULIN ASPART
     Indication: TYPE 1 DIABETES MELLITUS
     Dosage: 60 APPROX UI
     Route: 058

REACTIONS (5)
  - Diabetic ketoacidosis [Not Recovered/Not Resolved]
  - Acne [Unknown]
  - Skin papilloma [Unknown]
  - Blood glucose fluctuation [Not Recovered/Not Resolved]
  - Cystitis [Unknown]
